FAERS Safety Report 10961031 (Version 1)
Quarter: 2015Q1

REPORT INFORMATION
  Report Type: Spontaneous
  Country: US (occurrence: None)
  Receive Date: 20150326
  Receipt Date: 20150326
  Transmission Date: 20150721
  Serious: No
  Sender: FDA-Public Use
  Company Number: None

PATIENT
  Age: 33 Year
  Sex: Male
  Weight: 90.72 kg

DRUGS (1)
  1. EFFEXOR [Suspect]
     Active Substance: VENLAFAXINE HYDROCHLORIDE
     Indication: DEPRESSION
     Dosage: 3 PILLS
     Route: 048

REACTIONS (9)
  - Loss of consciousness [None]
  - Delusion [None]
  - Unevaluable event [None]
  - Memory impairment [None]
  - Theft [None]
  - Abnormal behaviour [None]
  - Legal problem [None]
  - Therapy cessation [None]
  - Derealisation [None]

NARRATIVE: CASE EVENT DATE: 20140901
